FAERS Safety Report 21267549 (Version 1)
Quarter: 2022Q3

REPORT INFORMATION
  Report Type: Spontaneous
  Country: US (occurrence: US)
  Receive Date: 20220829
  Receipt Date: 20220829
  Transmission Date: 20221027
  Serious: Yes (Hospitalization)
  Sender: FDA-Public Use
  Company Number: None

PATIENT
  Age: 63 Year
  Sex: Female

DRUGS (28)
  1. GEMCITABINE [Suspect]
     Active Substance: GEMCITABINE
     Indication: Invasive ductal breast carcinoma
     Dosage: UNK, CYCLE, RECEIVED 5 CYCLES
     Route: 065
  2. CARBOPLATIN [Suspect]
     Active Substance: CARBOPLATIN
     Indication: Invasive ductal breast carcinoma
     Dosage: UNK, CYCLE (RECEIVED 5 CYCLES)
     Route: 065
  3. METHADONE [Suspect]
     Active Substance: METHADONE HYDROCHLORIDE
     Indication: Cancer pain
     Dosage: 5 MILLIGRAM, BID (SHE WAS TAKING TWICE A DAY)
     Route: 065
  4. GABAPENTIN [Suspect]
     Active Substance: GABAPENTIN
     Indication: Cancer pain
     Dosage: 300 MILLIGRAM, TID
     Route: 065
  5. LIDOCAINE [Suspect]
     Active Substance: LIDOCAINE
     Indication: Cancer pain
     Dosage: 1.5 MILLIGRAM/KILOGRAM
     Route: 042
  6. LIDOCAINE [Suspect]
     Active Substance: LIDOCAINE
     Dosage: 1 MG/KG/HR
     Route: 042
  7. LIDOCAINE [Suspect]
     Active Substance: LIDOCAINE
     Dosage: 1.5 MG/KG/HR
     Route: 042
  8. DEXAMETHASONE [Suspect]
     Active Substance: DEXAMETHASONE
     Indication: Cancer pain
     Dosage: 10 MILLIGRAM, QD
     Route: 042
  9. DEXMEDETOMIDINE [Suspect]
     Active Substance: DEXMEDETOMIDINE
     Indication: Cancer pain
     Dosage: 0.1 MG/KG/HR
     Route: 065
  10. DEXMEDETOMIDINE [Suspect]
     Active Substance: DEXMEDETOMIDINE
     Indication: Generalised anxiety disorder
     Dosage: 0.2 MG/KG/HR
     Route: 065
  11. DEXMEDETOMIDINE [Suspect]
     Active Substance: DEXMEDETOMIDINE
     Dosage: 0.4 MG/KG/HR.
     Route: 065
  12. DEXMEDETOMIDINE [Suspect]
     Active Substance: DEXMEDETOMIDINE
     Dosage: 0.5 MG/KG/HR
     Route: 065
  13. OXYCODONE [Suspect]
     Active Substance: OXYCODONE
     Indication: Cancer pain
     Dosage: UNK, USING 5 TIMES DAILY ON AVERAGE
     Route: 065
  14. HYDROMORPHONE [Suspect]
     Active Substance: HYDROMORPHONE
     Indication: Cancer pain
     Dosage: 1 MILLIGRAM, Q4H EVERY 4 HOURS AS NEEDED
     Route: 042
  15. HYDROMORPHONE [Suspect]
     Active Substance: HYDROMORPHONE
     Dosage: 0.5 MILLIGRAM, A DEMAND DOSE OF 0.5 MG, 10 MIN LOCKOUT
     Route: 065
  16. HYDROMORPHONE [Suspect]
     Active Substance: HYDROMORPHONE
     Dosage: 0.6 MILLIGRAM, QH 0.6 MG/HR WITH 1 MG IV AVAILABLE EVERY 1 HOUR AS NEEDED.
     Route: 042
  17. HYDROMORPHONE [Suspect]
     Active Substance: HYDROMORPHONE
     Dosage: 1 MILLIGRAM, QH 1 MG IV EVERY 1 HOUR AS NEEDED.
     Route: 042
  18. HYDROMORPHONE [Suspect]
     Active Substance: HYDROMORPHONE
     Dosage: 0.8 MG/HR
     Route: 042
  19. ATIVAN [Suspect]
     Active Substance: LORAZEPAM
     Indication: Anxiety
     Dosage: 0.5 MILLIGRAM, AS NEEDED BEFORE IMAGING STUDIES.
     Route: 048
  20. ATIVAN [Suspect]
     Active Substance: LORAZEPAM
     Dosage: 0.5 MILLIGRAM, Q6H, 0.5 MG PO Q 6 HOURS AS NEEDED
     Route: 048
  21. LEXAPRO [Suspect]
     Active Substance: ESCITALOPRAM OXALATE
     Indication: Generalised anxiety disorder
     Dosage: 5 MILLIGRAM, QD
     Route: 065
  22. CHLORPROMAZINE [Suspect]
     Active Substance: CHLORPROMAZINE
     Indication: Delirium
     Dosage: 25 MILLIGRAM, 25 MG IV INFUSED OVER 30 MINUTES
     Route: 042
  23. CHLORPROMAZINE [Suspect]
     Active Substance: CHLORPROMAZINE
     Indication: Insomnia
     Dosage: 25 MILLIGRAM, Q8H
     Route: 042
  24. RISPERIDONE [Concomitant]
     Active Substance: RISPERIDONE
     Indication: Generalised anxiety disorder
     Dosage: 0.5 MG EVERY 4 HOURS AS NEEDED
     Route: 065
  25. RISPERIDONE [Concomitant]
     Active Substance: RISPERIDONE
     Indication: Panic disorder
  26. RISPERIDONE [Concomitant]
     Active Substance: RISPERIDONE
     Indication: Hallucination
  27. TRAZODONE [Concomitant]
     Active Substance: TRAZODONE HYDROCHLORIDE
     Indication: Insomnia
     Dosage: 25 MILLIGRAM, QD, 25 MG EVERY NIGHT AT BED TIME WITH AN ADDITIONAL DOSE 25 MG AS NEEDED
     Route: 065
  28. TRAZODONE [Concomitant]
     Active Substance: TRAZODONE HYDROCHLORIDE
     Dosage: 150 MILLIGRAM, QD, EVERY NIGHT AT BED TIME
     Route: 065

REACTIONS (4)
  - Drug ineffective [Unknown]
  - Disease progression [Unknown]
  - Delirium [Recovering/Resolving]
  - Off label use [Unknown]
